FAERS Safety Report 9694585 (Version 2)
Quarter: 2014Q2

REPORT INFORMATION
  Report Type: Spontaneous
  Country: AU (occurrence: AU)
  Receive Date: 20131118
  Receipt Date: 20140604
  Transmission Date: 20141212
  Serious: Yes (Other)
  Sender: FDA-Public Use
  Company Number: AU-ABBVIE-13P-008-1158223-00

PATIENT
  Age: 20 Year
  Sex: Male

DRUGS (2)
  1. EPILIM [Suspect]
     Indication: SCHIZOPHRENIA
     Route: 048
     Dates: end: 20010501
  2. ZYPREXA [Suspect]
     Indication: SCHIZOPHRENIA
     Route: 048

REACTIONS (1)
  - Rhabdomyolysis [Recovered/Resolved]
